FAERS Safety Report 6803737-X (Version None)
Quarter: 2010Q2

REPORT INFORMATION
  Report Type: 
  Country: None (occurrence: None)
  Receive Date: 20100628
  Receipt Date: 20100628
  Transmission Date: 20101027
  Serious: Yes (Other)
  Sender: FDA-Public Use
  Company Number: None

PATIENT
  Age: 51 Year
  Sex: Female
  Weight: 48.0813 kg

DRUGS (2)
  1. MONISTAT [Suspect]
     Indication: FUNGAL INFECTION
     Dosage: 1-DOSE OVULE ONCE VAG
     Route: 067
     Dates: start: 20100622, end: 20100623
  2. MONISTAT-DERM [Suspect]
     Indication: FUNGAL INFECTION
     Dosage: SMALL AMOUNT 2-4 TIMES DAILY TOP, ONE TIME
     Route: 061

REACTIONS (3)
  - GENITAL BURNING SENSATION [None]
  - GENITAL PAIN [None]
  - GENITAL SWELLING [None]
